FAERS Safety Report 14851856 (Version 1)
Quarter: 2018Q2

REPORT INFORMATION
  Report Type: Report from Study
  Country: US (occurrence: US)
  Receive Date: 20180507
  Receipt Date: 20180507
  Transmission Date: 20180711
  Serious: Yes (Hospitalization)
  Sender: FDA-Public Use
  Company Number: US-ROCHE-2116106

PATIENT

DRUGS (4)
  1. CAPECITABINE. [Suspect]
     Active Substance: CAPECITABINE
     Indication: RECTAL ADENOCARCINOMA
     Route: 065
  2. LEUCOVORIN. [Suspect]
     Active Substance: LEUCOVORIN
     Indication: RECTAL ADENOCARCINOMA
     Route: 065
  3. OXALIPLATIN. [Suspect]
     Active Substance: OXALIPLATIN
     Indication: RECTAL ADENOCARCINOMA
     Route: 065
  4. FLUOROURACIL. [Suspect]
     Active Substance: FLUOROURACIL
     Indication: RECTAL ADENOCARCINOMA
     Route: 065

REACTIONS (15)
  - Urinary tract infection [Unknown]
  - Small intestinal obstruction [Unknown]
  - Acute kidney injury [Unknown]
  - Incontinence [Unknown]
  - Urosepsis [Unknown]
  - Abscess [Unknown]
  - Urinary tract obstruction [Unknown]
  - Hydronephrosis [Unknown]
  - Fistula [Unknown]
  - Ileus [Unknown]
  - Anastomotic complication [Unknown]
  - Hernia repair [Unknown]
  - Diverticulitis [Unknown]
  - Stent placement [Unknown]
  - Stoma complication [Unknown]
